FAERS Safety Report 6248384-6 (Version None)
Quarter: 2009Q2

REPORT INFORMATION
  Report Type: 
  Country: None (occurrence: None)
  Receive Date: 20090629
  Receipt Date: 20090623
  Transmission Date: 20091009
  Serious: Yes (Death, Hospitalization, Other)
  Sender: FDA-Public Use
  Company Number: PHHY2009JP24404

PATIENT
  Age: 35 Year
  Sex: Female

DRUGS (2)
  1. CYCLOSPORINE [Suspect]
     Indication: LUNG TRANSPLANT
     Dosage: UNK
     Dates: end: 20060101
  2. TACROLIMUS [Concomitant]
     Dosage: UNK
     Dates: start: 20060101

REACTIONS (13)
  - ASTHMA [None]
  - BEDRIDDEN [None]
  - BRONCHITIS [None]
  - BRONCHOPULMONARY ASPERGILLOSIS [None]
  - DEPRESSION [None]
  - DYSPNOEA [None]
  - GENERAL PHYSICAL CONDITION ABNORMAL [None]
  - INTERSTITIAL LUNG DISEASE [None]
  - LUNG INFILTRATION [None]
  - MALAISE [None]
  - PNEUMOTHORAX [None]
  - PYREXIA [None]
  - RESTRICTIVE PULMONARY DISEASE [None]
